FAERS Safety Report 11253449 (Version 1)
Quarter: 2015Q3

REPORT INFORMATION
  Report Type: Report from Study
  Country: CH (occurrence: None)
  Receive Date: 20150707
  Receipt Date: 20150707
  Transmission Date: 20151125
  Serious: Yes (Other)
  Sender: FDA-Public Use
  Company Number: CH2015GSK094753

PATIENT
  Age: 46 Year
  Sex: Male

DRUGS (1)
  1. LAMIVUDINE + ZIDOVUDINE (LAMIVUDINE, ZIDOVUDINE) FILM-COATED TABLET [Suspect]
     Active Substance: LAMIVUDINE\ZIDOVUDINE
     Indication: HIV INFECTION

REACTIONS (2)
  - Pneumocystis jirovecii pneumonia [None]
  - Treatment noncompliance [None]
